FAERS Safety Report 6776265-8 (Version None)
Quarter: 2010Q2

REPORT INFORMATION
  Report Type: 
  Country: None (occurrence: None)
  Receive Date: 20100615
  Receipt Date: 20100603
  Transmission Date: 20101027
  Serious: Yes (Other)
  Sender: FDA-Public Use
  Company Number: 2010US001985

PATIENT
  Age: 25 Year
  Sex: Female

DRUGS (1)
  1. PROGRAF [Suspect]
     Indication: PROPHYLAXIS AGAINST GRAFT VERSUS HOST DISEASE
     Dates: start: 20030901

REACTIONS (8)
  - ACUTE GRAFT VERSUS HOST DISEASE IN LIVER [None]
  - ACUTE GRAFT VERSUS HOST DISEASE IN SKIN [None]
  - BONE GRAFT [None]
  - HYPERKALAEMIA [None]
  - LEUKAEMIA RECURRENT [None]
  - MICROANGIOPATHY [None]
  - RENAL FAILURE [None]
  - STEM CELL TRANSPLANT [None]
